FAERS Safety Report 6327908-4 (Version None)
Quarter: 2009Q3

REPORT INFORMATION
  Report Type: 
  Country: None (occurrence: None)
  Receive Date: 20090825
  Receipt Date: 20081111
  Transmission Date: 20100115
  Serious: No
  Sender: FDA-Public Use
  Company Number: US-ABBOTT-03P-163-0211387-00

PATIENT
  Sex: Female
  Weight: 62.652 kg

DRUGS (11)
  1. SYNTHROID [Suspect]
     Indication: HORMONE REPLACEMENT THERAPY
     Route: 048
     Dates: start: 19850101, end: 20010827
  2. SYNTHROID [Suspect]
     Route: 048
     Dates: start: 20010901, end: 20030719
  3. SYNTHROID [Suspect]
     Route: 048
     Dates: start: 20010901, end: 20030719
  4. SYNTHROID [Suspect]
     Route: 048
     Dates: start: 20070614, end: 20070627
  5. SYNTHROID [Suspect]
     Dosage: 125/150 MCG EVERY OTHER DAY
     Dates: start: 20070628
  6. SYNTHROID [Suspect]
     Route: 048
  7. PROGESTERONE [Suspect]
     Indication: DRUG USE FOR UNKNOWN INDICATION
     Route: 061
     Dates: start: 20070601
  8. CALCIUM WITH MAGNESIUM AND BORON CITRATE [Concomitant]
     Route: 048
     Dates: start: 20021101, end: 20030201
  9. CALCIUM WITH MAGNESIUM AND BORON CITRATE [Concomitant]
     Route: 048
     Dates: start: 20030201
  10. LEVOTHYROXINE SODIUM [Concomitant]
     Indication: THYROID CANCER
     Route: 048
     Dates: start: 20010828, end: 20010901
  11. PROGESTERONE [Concomitant]
     Route: 061
     Dates: start: 20070601

REACTIONS (16)
  - ALOPECIA [None]
  - ANXIETY [None]
  - DEPRESSION [None]
  - DIARRHOEA [None]
  - DYSPEPSIA [None]
  - DYSPNOEA [None]
  - FATIGUE [None]
  - FEELING ABNORMAL [None]
  - FEELING HOT [None]
  - HEART RATE INCREASED [None]
  - INSOMNIA [None]
  - MUSCLE FATIGUE [None]
  - PAIN IN EXTREMITY [None]
  - PALPITATIONS [None]
  - SLUGGISHNESS [None]
  - WEIGHT DECREASED [None]
